FAERS Safety Report 9314434 (Version 1)
Quarter: 2013Q2

REPORT INFORMATION
  Report Type: Spontaneous
  Country: US (occurrence: US)
  Receive Date: 20130529
  Receipt Date: 20130529
  Transmission Date: 20140414
  Serious: No
  Sender: FDA-Public Use
  Company Number: US-PFIZER INC-2013161055

PATIENT
  Age: 85 Year
  Sex: Male
  Weight: 63.49 kg

DRUGS (17)
  1. VIAGRA [Suspect]
     Indication: ERECTILE DYSFUNCTION
     Dosage: 25 MG, AS NEEDED
     Route: 048
  2. VIAGRA [Suspect]
     Dosage: 50 MG, AS NEEDED
     Route: 048
  3. EXELON [Concomitant]
     Dosage: 9.5 MG, UNK
  4. REQUIP XL [Concomitant]
     Dosage: UNK
  5. AZILECT [Concomitant]
     Dosage: UNK
  6. LEVODOPA-CARBIDOPA [Concomitant]
     Dosage: UNK
  7. LIPITOR [Concomitant]
     Dosage: UNK
  8. LISINOPRIL [Concomitant]
     Dosage: UNK
  9. TERAZOSIN [Concomitant]
     Dosage: UNK
  10. METRONIDAZOLE [Concomitant]
     Dosage: UNK
  11. FLUOXETINE [Concomitant]
     Dosage: UNK
  12. GLIMEPIRIDE [Concomitant]
     Dosage: UNK
  13. FOLBEE PLUS [Concomitant]
     Dosage: UNK
  14. FLORASTOR [Concomitant]
     Dosage: UNK
  15. VITAMIN D3 [Concomitant]
     Dosage: UNK
  16. CENTRUM SILVER [Concomitant]
     Dosage: UNK
  17. ASPIRIN [Concomitant]
     Dosage: UNK

REACTIONS (1)
  - Drug ineffective [Unknown]
